FAERS Safety Report 9958976 (Version 1)
Quarter: 2014Q1

REPORT INFORMATION
  Report Type: Spontaneous
  Country: US (occurrence: None)
  Receive Date: 20140227
  Receipt Date: 20140227
  Transmission Date: 20141002
  Serious: Yes (Other)
  Sender: FDA-Public Use
  Company Number: 001674110A

PATIENT
  Age: 42 Year
  Sex: Female

DRUGS (5)
  1. MB ANTIOXIDANT DAY CREME SPF 20 [Suspect]
     Dosage: TWICE DAILY DERMAL
  2. MB SKIN BRIGHTENING DECOLLETE + NECK TREATMENT SPF15 [Suspect]
     Dosage: TWICE DAILY DERMAL
  3. SYSTOLIC 10MG [Concomitant]
  4. VITAMIN D [Concomitant]
  5. EPIPEN [Concomitant]

REACTIONS (3)
  - Urticaria [None]
  - Pruritus [None]
  - Burning sensation [None]
